FAERS Safety Report 6506901-2 (Version None)
Quarter: 2009Q4

REPORT INFORMATION
  Report Type: 
  Country: None (occurrence: None)
  Receive Date: 20091221
  Receipt Date: 20091211
  Transmission Date: 20100525
  Serious: Yes (Death)
  Sender: FDA-Public Use
  Company Number: US-SANOFI-AVENTIS-A03200904737

PATIENT
  Age: 69 Year
  Sex: Female
  Weight: 56.7 kg

DRUGS (1)
  1. CLOPIDOGREL BISULFATE [Suspect]
     Dosage: UNIT DOSE: 75 MG
     Route: 048

REACTIONS (1)
  - CHRONIC OBSTRUCTIVE PULMONARY DISEASE [None]
